FAERS Safety Report 8941615 (Version 1)
Quarter: 2012Q4

REPORT INFORMATION
  Report Type: 
  Country: US (occurrence: US)
  Receive Date: 20121203
  Receipt Date: 20121203
  Transmission Date: 20130627
  Serious: Yes (Other)
  Sender: FDA-Public Use
  Company Number: US-PFIZER INC-2012301856

PATIENT
  Age: 77 Year
  Sex: Female
  Weight: 72.56 kg

DRUGS (1)
  1. LIPITOR [Suspect]
     Dosage: UNK

REACTIONS (4)
  - Diabetes mellitus [Unknown]
  - Asthenia [Unknown]
  - Muscle atrophy [Unknown]
  - Activities of daily living impaired [Unknown]
